FAERS Safety Report 25312595 (Version 3)
Quarter: 2025Q2

REPORT INFORMATION
  Report Type: Spontaneous
  Country: CO (occurrence: CO)
  Receive Date: 20250514
  Receipt Date: 20250624
  Transmission Date: 20250717
  Serious: Yes (Other)
  Sender: PFIZER
  Company Number: CO-PFIZER INC-202500098236

PATIENT
  Age: 62 Year
  Sex: Female

DRUGS (1)
  1. LORBRENA [Suspect]
     Active Substance: LORLATINIB
     Indication: Lung neoplasm malignant
     Dosage: 3 TABLETS OF 25 MG DAILY IN ONE INTAKE
     Route: 048

REACTIONS (2)
  - Hallucination [Recovering/Resolving]
  - Confusional state [Recovering/Resolving]
